FAERS Safety Report 12782626 (Version 10)
Quarter: 2019Q3

REPORT INFORMATION
  Report Type: Report from Study
  Country: JP (occurrence: JP)
  Receive Date: 20160927
  Receipt Date: 20190703
  Transmission Date: 20191004
  Serious: Yes (Hospitalization, Other)
  Sender: FDA-Public Use
  Company Number: JP-BRISTOL-MYERS SQUIBB COMPANY-BMS-2016-079909

PATIENT
  Age: 77 Year
  Sex: Female
  Weight: 58 kg

DRUGS (3)
  1. AZILVA [Concomitant]
     Active Substance: AZILSARTAN KAMEDOXOMIL
     Indication: HYPERTENSION
     Dosage: 40 MG, UNK
     Route: 048
  2. AMLODIN [Concomitant]
     Active Substance: AMLODIPINE BESYLATE
     Indication: HYPERTENSION
     Dosage: 5 MG, UNK
     Route: 048
  3. IPILIMUMAB [Suspect]
     Active Substance: IPILIMUMAB
     Indication: MALIGNANT MELANOMA STAGE IV
     Dosage: 3 MG/KG, Q3WK
     Route: 041
     Dates: start: 20160722, end: 20160902

REACTIONS (3)
  - Secondary adrenocortical insufficiency [Recovered/Resolved with Sequelae]
  - Hyponatraemia [Recovered/Resolved]
  - Hypophysitis [Not Recovered/Not Resolved]

NARRATIVE: CASE EVENT DATE: 20160908
